FAERS Safety Report 23881364 (Version 1)
Quarter: 2024Q2

REPORT INFORMATION
  Report Type: Spontaneous
  Country: US (occurrence: US)
  Receive Date: 20240521
  Receipt Date: 20240521
  Transmission Date: 20240716
  Serious: Yes (Other)
  Sender: FDA-Public Use
  Company Number: US-PFIZER INC-202400172494

PATIENT
  Sex: Female

DRUGS (2)
  1. XELJANZ [Interacting]
     Active Substance: TOFACITINIB CITRATE
     Dosage: UNK
  2. METHOTREXATE SODIUM [Interacting]
     Active Substance: METHOTREXATE SODIUM
     Dosage: UNK

REACTIONS (2)
  - Drug interaction [Unknown]
  - Liver injury [Unknown]
